FAERS Safety Report 17883605 (Version 4)
Quarter: 2020Q4

REPORT INFORMATION
  Report Type: Report from Study
  Country: US (occurrence: US)
  Receive Date: 20200611
  Receipt Date: 20201104
  Transmission Date: 20210113
  Serious: Yes (Other)
  Sender: FDA-Public Use
  Company Number: NVSC2020US161909

PATIENT
  Age: 52 Year
  Sex: Female
  Weight: 94.3 kg

DRUGS (1)
  1. GILENYA [Suspect]
     Active Substance: FINGOLIMOD HYDROCHLORIDE
     Indication: RELAPSING-REMITTING MULTIPLE SCLEROSIS
     Dosage: 0.5 MG, QD
     Route: 048
     Dates: start: 20191231, end: 20200717

REACTIONS (2)
  - Macular oedema [Recovering/Resolving]
  - Retinal oedema [Unknown]

NARRATIVE: CASE EVENT DATE: 20200501
